FAERS Safety Report 18236882 (Version 1)
Quarter: 2020Q3

REPORT INFORMATION
  Report Type: Spontaneous
  Country: GB (occurrence: GB)
  Receive Date: 20200907
  Receipt Date: 20200907
  Transmission Date: 20201103
  Serious: Yes (Hospitalization, Other)
  Sender: FDA-Public Use
  Company Number: GB-009507513-2009GBR000881

PATIENT
  Age: 57 Year
  Sex: Female
  Weight: 79.5 kg

DRUGS (23)
  1. ALBUTEROL. [Concomitant]
     Active Substance: ALBUTEROL
     Indication: ASTHMA
     Dosage: UNK, 1?2 PUFFS QDS/ PRN, INHALER
     Route: 048
     Dates: end: 20200628
  2. CLOZARIL [Suspect]
     Active Substance: CLOZAPINE
     Indication: SCHIZOPHRENIA
     Dosage: 400 MILLIGRAM, QD (200 MILLIGRAM, BID)
     Route: 048
     Dates: start: 2020
  3. ACETAMINOPHEN. [Suspect]
     Active Substance: ACETAMINOPHEN
     Indication: SCIATICA
     Dosage: 15 GRAM, QD (15 G)
     Route: 048
     Dates: start: 20200628, end: 20200628
  4. LANSOPRAZOLE. [Suspect]
     Active Substance: LANSOPRAZOLE
     Dosage: 105 MILLIGRAM, QD (105 MG)
     Route: 048
     Dates: start: 20200628, end: 20200628
  5. ADCAL?D3 [Concomitant]
     Active Substance: CALCIUM CARBONATE\CHOLECALCIFEROL
     Indication: SUPPLEMENTATION THERAPY
     Dosage: 4 DOSAGE FORM, QD (2 DOSAGE FORM, BID, 750MG/100 UNITS)
     Route: 048
     Dates: end: 20200628
  6. BECLOMETHASONE DIPROPIONATE [Concomitant]
     Active Substance: BECLOMETHASONE DIPROPIONATE
     Indication: CHRONIC OBSTRUCTIVE PULMONARY DISEASE
  7. AMLODIPINE [Suspect]
     Active Substance: AMLODIPINE BESYLATE
     Dosage: 70 MILLIGRAM, QD (70 MG)
     Route: 048
     Dates: start: 20200628, end: 20200628
  8. ACETYLCYSTEINE. [Concomitant]
     Active Substance: ACETYLCYSTEINE
     Indication: PRODUCT USED FOR UNKNOWN INDICATION
     Dosage: UNK
  9. AMLODIPINE [Suspect]
     Active Substance: AMLODIPINE BESYLATE
     Indication: HYPERTENSION
     Dosage: 5 MILLIGRAM, QD (5 MG, QD)
     Route: 048
     Dates: end: 20200628
  10. HYALURONATE SODIUM [Concomitant]
     Active Substance: HYALURONATE SODIUM
     Indication: DRY SKIN
     Dosage: UNK, ASD
     Route: 061
     Dates: end: 20200628
  11. CLOZARIL [Suspect]
     Active Substance: CLOZAPINE
     Dosage: 4.2 GRAM, QD (4.2 G, QD)
     Route: 048
     Dates: start: 20200628
  12. LANSOPRAZOLE. [Suspect]
     Active Substance: LANSOPRAZOLE
     Indication: PROPHYLAXIS AGAINST GASTROINTESTINAL ULCER
     Dosage: 15 MILLIGRAM, QD  (15 MG, QD)
     Route: 048
     Dates: end: 20200628
  13. MIRTAZAPINE. [Suspect]
     Active Substance: MIRTAZAPINE
     Indication: DEPRESSION
     Dosage: 45 MILLIGRAM, QD (45 MG, QD)
     Route: 048
     Dates: end: 20200628
  14. MIRTAZAPINE. [Suspect]
     Active Substance: MIRTAZAPINE
     Dosage: 315 MILLIGRAM
     Route: 048
     Dates: start: 20200628, end: 20200628
  15. CLOZARIL [Suspect]
     Active Substance: CLOZAPINE
     Dosage: 600 MILLIGRAM, QD (300 MILLIGRAM, BID)
     Route: 048
     Dates: start: 20050118, end: 20200628
  16. ACETAMINOPHEN. [Suspect]
     Active Substance: ACETAMINOPHEN
     Indication: ARTHRITIS
     Dosage: UNK, 500 MG TO 1 GRAM, QDS, PRN
     Route: 048
     Dates: end: 20200628
  17. ACETAMINOPHEN. [Suspect]
     Active Substance: ACETAMINOPHEN
     Indication: PAIN
  18. NAPROXEN. [Suspect]
     Active Substance: NAPROXEN
     Indication: ARTHRITIS
     Dosage: 1000 MILLIGRAM, QD (500 MG, BID)
     Route: 048
     Dates: end: 20200628
  19. BECLOMETHASONE DIPROPIONATE [Concomitant]
     Active Substance: BECLOMETHASONE DIPROPIONATE
     Indication: ASTHMA
     Dosage: UNK UNK, QD (2 PUFFS, BID, INHALER)
     Route: 048
     Dates: end: 20200628
  20. ALBUTEROL. [Concomitant]
     Active Substance: ALBUTEROL
     Indication: CHRONIC OBSTRUCTIVE PULMONARY DISEASE
  21. NAPROXEN. [Suspect]
     Active Substance: NAPROXEN
     Indication: PAIN
     Dosage: 21 GRAM, QD (21 G)
     Route: 048
     Dates: start: 20200628, end: 20200628
  22. NAPROXEN. [Suspect]
     Active Substance: NAPROXEN
     Indication: SCIATICA
  23. AQUADERM SUNSCREEN MOISTURIZER [Concomitant]
     Indication: DRY SKIN
     Dosage: UNK (ASD, ASD)
     Route: 061
     Dates: end: 20200628

REACTIONS (3)
  - Sinus tachycardia [Unknown]
  - Overdose [Recovering/Resolving]
  - Haemorrhage [Unknown]

NARRATIVE: CASE EVENT DATE: 2020
